FAERS Safety Report 7934249-8 (Version None)
Quarter: 2011Q4

REPORT INFORMATION
  Report Type: 
  Country: None (occurrence: None)
  Receive Date: 20111118
  Receipt Date: 20111104
  Transmission Date: 20120403
  Serious: Yes (Hospitalization)
  Sender: FDA-Public Use
  Company Number: 2011MA016269

PATIENT
  Age: 66 Year
  Sex: Female

DRUGS (4)
  1. PRAVASTATIN [Suspect]
     Indication: BLOOD CHOLESTEROL
     Dosage: 40 MG;QD;PO
     Route: 048
     Dates: end: 20111025
  2. AMLODIPINE [Suspect]
     Indication: BLOOD PRESSURE
     Dosage: 5 MG;QD;PO
     Route: 048
     Dates: end: 20111025
  3. RAMIPRIL [Suspect]
     Indication: BLOOD PRESSURE
     Dosage: 10 MG; QD;
     Dates: end: 20111026
  4. MEMANTINE HCL [Suspect]
     Indication: DEMENTIA
     Dosage: 10 MG;QD; PO
     Route: 048
     Dates: end: 20111025

REACTIONS (2)
  - ABDOMINAL PAIN UPPER [None]
  - PANCREATITIS ACUTE [None]
